FAERS Safety Report 16396301 (Version 1)
Quarter: 2019Q2

REPORT INFORMATION
  Report Type: Spontaneous
  Country: US (occurrence: US)
  Receive Date: 20190605
  Receipt Date: 20190605
  Transmission Date: 20190711
  Serious: Yes (Other)
  Sender: FDA-Public Use
  Company Number: US-AMGEN-USASP2019088209

PATIENT

DRUGS (5)
  1. CARFILZOMIB [Suspect]
     Active Substance: CARFILZOMIB
     Indication: PLASMA CELL MYELOMA
     Dosage: 20 MILLIGRAM/SQ. METER, DAYS 1-2 OF CYCLE 1 AT ALL DOSE LEVELS
     Route: 065
  2. SELINEXOR [Suspect]
     Active Substance: SELINEXOR
     Indication: PLASMA CELL MYELOMA
     Dosage: 30 MILLIGRAM/SQ. METER, DAYS 1, 3, 8, 10, 15 AND 17
     Route: 065
  3. CARFILZOMIB [Suspect]
     Active Substance: CARFILZOMIB
     Dosage: 27 MILLIGRAM/SQ. METER,  DAYS 8, 9, 15, 16 OF FIRST CYCLE, THEN 1, 2, 8, 9, 15 AND 16 THEREAFTER
     Route: 065
  4. CARFILZOMIB [Suspect]
     Active Substance: CARFILZOMIB
     Dosage: UNK, DAYS 1, 2, 15 AND 16 POST CYCLE 9
     Route: 065
  5. DEXAMETHASONE. [Concomitant]
     Active Substance: DEXAMETHASONE
     Indication: PLASMA CELL MYELOMA
     Dosage: 10-20 MILLIGRAM, (ON DAYS 1, 2, 8, 9, 15, 16, 22 AND 23

REACTIONS (2)
  - Cardiac failure congestive [Unknown]
  - Off label use [Unknown]
